FAERS Safety Report 8849347 (Version 2)
Quarter: 2012Q4

REPORT INFORMATION
  Report Type: 
  Country: US (occurrence: US)
  Receive Date: 20121017
  Receipt Date: 20121107
  Transmission Date: 20130627
  Serious: Yes (Death, Other)
  Sender: FDA-Public Use
  Company Number: US-PFIZER INC-2012253346

PATIENT
  Sex: Male

DRUGS (3)
  1. DIGITOXIN [Suspect]
     Dosage: UNK
  2. ADRENALINE [Suspect]
     Dosage: UNK
  3. CORTISONE [Suspect]
     Dosage: UNK

REACTIONS (2)
  - Death [Fatal]
  - Malaise [Unknown]
